FAERS Safety Report 5070052-7 (Version None)
Quarter: 2006Q3

REPORT INFORMATION
  Report Type: 
  Country: None (occurrence: None)
  Receive Date: 20060731
  Receipt Date: 20060720
  Transmission Date: 20061208
  Serious: Yes (Other)
  Sender: FDA-Public Use
  Company Number: 2006090451

PATIENT
  Sex: Male

DRUGS (7)
  1. XALATAN [Suspect]
     Indication: INTRAOCULAR PRESSURE INCREASED
     Dosage: TOPICAL
     Route: 061
  2. ACETYLCYSTEINE [Concomitant]
  3. THEOPHYLLINE [Concomitant]
  4. SYMBICORT (BUDESONIDE, FORMOTEROL FUMARATE) [Concomitant]
  5. BUDESONIDE [Concomitant]
  6. DECORTIN (PREDNISONE) [Concomitant]
  7. FLUTINE (FLUOXETINE HYDROCHLORIDE) [Concomitant]

REACTIONS (2)
  - DYSPNOEA [None]
  - RESPIRATORY DISORDER [None]
